FAERS Safety Report 12405142 (Version 2)
Quarter: 2016Q3

REPORT INFORMATION
  Report Type: Spontaneous
  Country: US (occurrence: US)
  Receive Date: 20160525
  Receipt Date: 20160718
  Transmission Date: 20161109
  Serious: Yes (Death)
  Sender: FDA-Public Use
  Company Number: US-CELGENEUS-USA-2015115228

PATIENT
  Sex: Female

DRUGS (5)
  1. PLAQUENIL [Concomitant]
     Active Substance: HYDROXYCHLOROQUINE SULFATE
     Indication: SYSTEMIC LUPUS ERYTHEMATOSUS
     Route: 048
     Dates: start: 201308, end: 201601
  2. ACTHAR [Concomitant]
     Active Substance: CORTICOTROPIN
     Indication: SYSTEMIC LUPUS ERYTHEMATOSUS
     Route: 058
     Dates: start: 201409, end: 201601
  3. MOBIC [Concomitant]
     Active Substance: MELOXICAM
     Indication: SYSTEMIC LUPUS ERYTHEMATOSUS
     Route: 048
     Dates: start: 201504, end: 201601
  4. DECADRON [Concomitant]
     Active Substance: DEXAMETHASONE
     Indication: SYSTEMIC LUPUS ERYTHEMATOSUS
     Route: 048
     Dates: start: 201404, end: 201601
  5. THALOMID [Suspect]
     Active Substance: THALIDOMIDE
     Indication: SUBACUTE CUTANEOUS LUPUS ERYTHEMATOSUS
     Dosage: 200 MILLIGRAM
     Route: 048
     Dates: start: 201509, end: 20151109

REACTIONS (3)
  - Asthenia [Unknown]
  - Subacute cutaneous lupus erythematosus [Fatal]
  - Hypoaesthesia [Unknown]

NARRATIVE: CASE EVENT DATE: 2015
